FAERS Safety Report 8986148 (Version 1)
Quarter: 2012Q4

REPORT INFORMATION
  Report Type: Spontaneous
  Country: US (occurrence: None)
  Receive Date: 20121219
  Receipt Date: 20121219
  Transmission Date: 20130627
  Serious: Yes (Hospitalization)
  Sender: FDA-Public Use
  Company Number: None

PATIENT
  Age: 44 Year
  Sex: Male
  Weight: 74.1 kg

DRUGS (2)
  1. ENOXAPARIN [Suspect]
     Dates: start: 20121026, end: 20121026
  2. HEPARIN [Suspect]
     Dates: start: 20121026, end: 20121026

REACTIONS (1)
  - Heparin-induced thrombocytopenia [None]
